FAERS Safety Report 5387311-0 (Version None)
Quarter: 2007Q3

REPORT INFORMATION
  Report Type: 
  Country: None (occurrence: None)
  Receive Date: 20070716
  Receipt Date: 20070704
  Transmission Date: 20080115
  Serious: Yes (Other)
  Sender: FDA-Public Use
  Company Number: PHBS2007IT11477

PATIENT
  Age: 59 Year
  Sex: Female

DRUGS (3)
  1. ZOMETA [Suspect]
     Indication: MULTIPLE MYELOMA
     Dosage: 4 MG, MONTHLY
     Route: 042
     Dates: start: 20030101, end: 20050501
  2. THALIDOMIDE [Concomitant]
     Route: 065
  3. DEXAMETHASONE 0.5MG TAB [Concomitant]
     Route: 065

REACTIONS (7)
  - DENTAL ALVEOLAR ANOMALY [None]
  - FISTULA [None]
  - GINGIVAL PAIN [None]
  - ORAL MUCOSA ATROPHY [None]
  - OSTEOTOMY [None]
  - SEQUESTRECTOMY [None]
  - SKELETAL INJURY [None]
